FAERS Safety Report 10463802 (Version 1)
Quarter: 2014Q3

REPORT INFORMATION
  Report Type: Spontaneous
  Country: IT (occurrence: None)
  Receive Date: 20140917
  Receipt Date: 20140917
  Transmission Date: 20150326
  Serious: Yes (Death)
  Sender: FDA-Public Use
  Company Number: 2526052

PATIENT
  Age: 66 Year
  Sex: Male

DRUGS (2)
  1. OXALIPLATIN. [Suspect]
     Active Substance: OXALIPLATIN
     Indication: COLON CANCER
  2. CAPECITABINE [Suspect]
     Active Substance: CAPECITABINE
     Indication: COLON CANCER

REACTIONS (10)
  - Hepatomegaly [None]
  - Dysarthria [None]
  - Vertigo [None]
  - Coma [None]
  - Continuous haemodiafiltration [None]
  - Encephalopathy [None]
  - Confusional state [None]
  - Somnolence [None]
  - Convulsion [None]
  - Hallucination [None]
